FAERS Safety Report 9172867 (Version 1)
Quarter: 2013Q1

REPORT INFORMATION
  Report Type: Spontaneous
  Country: US (occurrence: US)
  Receive Date: 20130319
  Receipt Date: 20130319
  Transmission Date: 20140127
  Serious: No
  Sender: FDA-Public Use
  Company Number: US-ASTRAZENECA-2013SE10530

PATIENT
  Age: 69 Year
  Sex: Female
  Weight: 88.5 kg

DRUGS (1)
  1. BRILINTA [Suspect]
     Route: 048
     Dates: end: 20130211

REACTIONS (1)
  - Breast disorder female [Unknown]
